FAERS Safety Report 9230834 (Version 2)
Quarter: 2013Q2

REPORT INFORMATION
  Report Type: Report from Study
  Country: CA (occurrence: CA)
  Receive Date: 20130415
  Receipt Date: 20130509
  Transmission Date: 20140414
  Serious: Yes (Other)
  Sender: FDA-Public Use
  Company Number: CA-ROCHE-1213262

PATIENT
  Age: 61 Year
  Sex: Female
  Weight: 86.2 kg

DRUGS (14)
  1. RITUXAN [Suspect]
     Indication: RHEUMATOID ARTHRITIS
     Route: 042
     Dates: start: 20120816
  2. CRESTOR [Suspect]
     Indication: BLOOD CHOLESTEROL INCREASED
     Route: 065
     Dates: start: 201212
  3. MORPHINE [Suspect]
     Indication: PAIN
     Route: 065
     Dates: start: 201304, end: 201304
  4. DIPHENHYDRAMINE HCL [Concomitant]
     Indication: PREMEDICATION
     Route: 048
     Dates: start: 20120816
  5. ACETAMINOPHEN [Concomitant]
     Indication: PREMEDICATION
     Route: 048
     Dates: start: 20120816
  6. METHYLPREDNISOLONE [Concomitant]
     Indication: PREMEDICATION
     Route: 042
     Dates: start: 20120816
  7. PREDNISONE [Concomitant]
  8. TYLENOL #3 (CANADA) [Concomitant]
  9. METHOTREXATE [Concomitant]
  10. HYDROCHLOROTHIAZIDE [Concomitant]
  11. GARLIC [Concomitant]
  12. FISH OIL [Concomitant]
  13. FOLIC ACID [Concomitant]
  14. OMEGA 3 [Concomitant]

REACTIONS (6)
  - Blood cholesterol increased [Unknown]
  - Rheumatoid arthritis [Not Recovered/Not Resolved]
  - Pruritus [Not Recovered/Not Resolved]
  - Arthralgia [Not Recovered/Not Resolved]
  - Nausea [Unknown]
  - Migraine [Unknown]
